FAERS Safety Report 8166123 (Version 2)
Quarter: 2014Q1

REPORT INFORMATION
  Report Type: Spontaneous
  Country: US (occurrence: US)
  Receive Date: 20111003
  Receipt Date: 20140206
  Transmission Date: 20141002
  Serious: Yes (Hospitalization)
  Sender: FDA-Public Use
  Company Number: US-AMGEN-USASP2011049757

PATIENT
  Age: 72 Year
  Sex: Male

DRUGS (2)
  1. NEULASTA [Suspect]
     Indication: NEUTROPENIA
     Dosage: UNK
     Route: 065
     Dates: start: 20110823
  2. CLADRIBINE [Concomitant]
     Indication: HAIRY CELL LEUKAEMIA
     Dosage: UNK

REACTIONS (11)
  - Acute respiratory distress syndrome [Recovering/Resolving]
  - Pleural effusion [Recovering/Resolving]
  - Neutrophil count decreased [Recovering/Resolving]
  - Lung infiltration [Recovering/Resolving]
  - Pneumonia [Recovered/Resolved]
  - Coma [Recovered/Resolved]
  - Pyrexia [Recovered/Resolved]
  - Loss of consciousness [Recovered/Resolved]
  - Muscular weakness [Recovered/Resolved]
  - Gait disturbance [Recovered/Resolved]
  - Vertigo [Recovered/Resolved]
